FAERS Safety Report 20134736 (Version 1)
Quarter: 2021Q4

REPORT INFORMATION
  Report Type: Spontaneous
  Country: US (occurrence: None)
  Receive Date: 20211130
  Receipt Date: 20211130
  Transmission Date: 20220303
  Serious: Yes (Death)
  Sender: FDA-Public Use
  Company Number: None

PATIENT
  Age: 52 Year
  Sex: Female

DRUGS (9)
  1. KEYTRUDA [Suspect]
     Active Substance: PEMBROLIZUMAB
     Indication: Cervix carcinoma
     Dosage: FREQUENCY : 3 TIMES A WEEK;?
     Route: 058
     Dates: start: 20210701, end: 202111
  2. CLARITIN [Concomitant]
     Active Substance: LORATADINE
  3. CLIMARA DIS [Concomitant]
  4. HALOPERIDOL [Concomitant]
     Active Substance: HALOPERIDOL
  5. HYOSCYAMINE [Concomitant]
     Active Substance: HYOSCYAMINE
  6. LORAZEPAM [Concomitant]
     Active Substance: LORAZEPAM
  7. MAGNESIUM [Concomitant]
  8. VITAMIN D3 [Concomitant]
     Active Substance: CHOLECALCIFEROL
  9. ZOFRAN [Concomitant]
     Active Substance: ONDANSETRON HYDROCHLORIDE

REACTIONS (1)
  - Death [None]

NARRATIVE: CASE EVENT DATE: 20211101
